FAERS Safety Report 19784312 (Version 1)
Quarter: 2021Q3

REPORT INFORMATION
  Report Type: Spontaneous
  Country: US (occurrence: US)
  Receive Date: 20210903
  Receipt Date: 20210903
  Transmission Date: 20211014
  Serious: Yes (Hospitalization)
  Sender: FDA-Public Use
  Company Number: None

PATIENT
  Age: 87 Year
  Sex: Male
  Weight: 97.65 kg

DRUGS (7)
  1. ATORVASTATIN [Concomitant]
     Active Substance: ATORVASTATIN
     Dates: start: 20200707
  2. LOSARTAN. [Concomitant]
     Active Substance: LOSARTAN
     Dates: start: 20200707
  3. PANTOPRAZOLE SODIUM. [Concomitant]
     Active Substance: PANTOPRAZOLE SODIUM
     Dates: start: 20200707
  4. METOPROLOL. [Concomitant]
     Active Substance: METOPROLOL
     Dates: start: 20200719
  5. REGEN?COV [Suspect]
     Active Substance: CASIRIVIMAB\IMDEVIMAB
     Indication: COVID-19
     Dosage: ?          OTHER FREQUENCY:ONCE;?
     Route: 041
     Dates: start: 20210830, end: 20210830
  6. AMLODIPINE [Concomitant]
     Active Substance: AMLODIPINE BESYLATE
     Dates: start: 20200707
  7. OMEPRAZOLE. [Concomitant]
     Active Substance: OMEPRAZOLE
     Dates: start: 20200707

REACTIONS (10)
  - Atrioventricular block first degree [None]
  - Oxygen saturation decreased [None]
  - Hyperhidrosis [None]
  - Pseudomonas test positive [None]
  - Pulmonary congestion [None]
  - Pyrexia [None]
  - Urinary tract infection [None]
  - Dyspnoea [None]
  - Acute respiratory failure [None]
  - Sepsis [None]

NARRATIVE: CASE EVENT DATE: 20210830
